FAERS Safety Report 5338696-2 (Version None)
Quarter: 2007Q2

REPORT INFORMATION
  Report Type: 
  Country: None (occurrence: None)
  Receive Date: 20070530
  Receipt Date: 20070525
  Transmission Date: 20071010
  Serious: Yes (Hospitalization)
  Sender: FDA-Public Use
  Company Number: A0653041A

PATIENT
  Age: 82 Year
  Sex: Male

DRUGS (8)
  1. AVANDIA [Suspect]
     Dosage: 8MG PER DAY
     Route: 048
  2. ZETIA [Concomitant]
  3. PRANDIN [Concomitant]
  4. EXCEDRIN [Concomitant]
  5. CRESTOR [Concomitant]
  6. HYDRALAZINE HCL [Concomitant]
  7. PLAVIX [Concomitant]
  8. NORVASC [Concomitant]

REACTIONS (2)
  - CEREBROVASCULAR ACCIDENT [None]
  - GAIT DISTURBANCE [None]
